FAERS Safety Report 14330046 (Version 2)
Quarter: 2018Q1

REPORT INFORMATION
  Report Type: Spontaneous
  Country: US (occurrence: US)
  Receive Date: 20171227
  Receipt Date: 20180130
  Transmission Date: 20180509
  Serious: No
  Sender: FDA-Public Use
  Company Number: US-VERTEX PHARMACEUTICALS-2017-007167

PATIENT
  Age: 27 Year
  Sex: Male

DRUGS (11)
  1. RANITIDINE. [Concomitant]
     Active Substance: RANITIDINE
  2. TOBI [Concomitant]
     Active Substance: TOBRAMYCIN
  3. HYPERSAL [Concomitant]
     Route: 055
  4. VITAMIN K1 [Concomitant]
     Active Substance: PHYTONADIONE
  5. E-400 [Concomitant]
  6. KALYDECO [Suspect]
     Active Substance: IVACAFTOR
     Indication: CYSTIC FIBROSIS
     Dosage: 150 MG, BID
     Route: 048
     Dates: start: 20141006
  7. CREON [Concomitant]
     Active Substance: PANCRELIPASE AMYLASE\PANCRELIPASE LIPASE\PANCRELIPASE PROTEASE
  8. ALBUTEROL                          /00139501/ [Concomitant]
     Active Substance: ALBUTEROL
  9. ZYVOX [Concomitant]
     Active Substance: LINEZOLID
  10. ADVAIR HFA [Concomitant]
     Active Substance: FLUTICASONE PROPIONATE\SALMETEROL XINAFOATE
  11. PULMOZYME [Concomitant]
     Active Substance: DORNASE ALFA

REACTIONS (1)
  - Pneumonia [Recovered/Resolved]

NARRATIVE: CASE EVENT DATE: 20171218
